FAERS Safety Report 6134337-5 (Version None)
Quarter: 2009Q1

REPORT INFORMATION
  Report Type: 
  Country: None (occurrence: None)
  Receive Date: 20090327
  Receipt Date: 20090320
  Transmission Date: 20090719
  Serious: Yes (Hospitalization)
  Sender: FDA-Public Use
  Company Number: IT-RANBAXY-2009RR-22888

PATIENT
  Sex: Female

DRUGS (1)
  1. RAMIPRIL [Suspect]

REACTIONS (4)
  - ANOREXIA [None]
  - ASTHENIA [None]
  - HYPOTENSION [None]
  - RENAL FAILURE ACUTE [None]
